FAERS Safety Report 6720886-5 (Version None)
Quarter: 2010Q2

REPORT INFORMATION
  Report Type: 
  Country: None (occurrence: None)
  Receive Date: 20100511
  Receipt Date: 20100511
  Transmission Date: 20101027
  Serious: Yes (Disabling)
  Sender: FDA-Public Use
  Company Number: None

PATIENT
  Sex: Female
  Weight: 95.7 kg

DRUGS (1)
  1. TAXUS LIBERTE [Suspect]

REACTIONS (2)
  - CHEST PAIN [None]
  - DEVICE OCCLUSION [None]
